FAERS Safety Report 22644882 (Version 1)
Quarter: 2023Q2

REPORT INFORMATION
  Report Type: Spontaneous
  Country: NO (occurrence: NO)
  Receive Date: 20230627
  Receipt Date: 20230627
  Transmission Date: 20230722
  Serious: Yes (Other)
  Sender: FDA-Public Use
  Company Number: None

PATIENT
  Age: 38 Year
  Sex: Female
  Weight: 68 kg

DRUGS (5)
  1. MIRENA [Suspect]
     Active Substance: LEVONORGESTREL
     Indication: Contraception
     Dosage: 20?G/DAY
     Route: 015
     Dates: start: 202106
  2. MAGNESIUM [Concomitant]
     Active Substance: MAGNESIUM
  3. VITAMIN D NOS [Concomitant]
     Active Substance: VITAMIN D NOS
  4. ASCORBIC ACID [Concomitant]
     Active Substance: ASCORBIC ACID
  5. VITAMIN B [Concomitant]
     Active Substance: VITAMIN B

REACTIONS (6)
  - Suicidal ideation [Not Recovered/Not Resolved]
  - Negative thoughts [Not Recovered/Not Resolved]
  - Breast tenderness [Not Recovered/Not Resolved]
  - Depression [Not Recovered/Not Resolved]
  - Intermenstrual bleeding [Not Recovered/Not Resolved]
  - Depressed mood [Not Recovered/Not Resolved]

NARRATIVE: CASE EVENT DATE: 20210701
